FAERS Safety Report 6911812-4 (Version None)
Quarter: 2010Q3

REPORT INFORMATION
  Report Type: 
  Country: None (occurrence: None)
  Receive Date: 20100806
  Receipt Date: 20071220
  Transmission Date: 20110219
  Serious: No
  Sender: FDA-Public Use
  Company Number: US-PFIZER INC-2007061259

PATIENT
  Sex: Female
  Weight: 78.2 kg

DRUGS (6)
  1. DETROL LA [Suspect]
     Indication: HYPERTONIC BLADDER
     Dates: start: 20070201, end: 20070723
  2. NAMENDA [Interacting]
     Indication: MEMORY IMPAIRMENT
  3. ARICEPT [Concomitant]
  4. LIPITOR [Concomitant]
  5. ACETYLSALICYLIC ACID SRT [Concomitant]
  6. MULTI-VITAMINS [Concomitant]

REACTIONS (6)
  - DIARRHOEA [None]
  - DISORIENTATION [None]
  - DRUG INTERACTION [None]
  - FAECES DISCOLOURED [None]
  - FATIGUE [None]
  - LETHARGY [None]
